FAERS Safety Report 15615113 (Version 2)
Quarter: 2019Q1

REPORT INFORMATION
  Report Type: Report from Study
  Country: CZ (occurrence: CZ)
  Receive Date: 20181114
  Receipt Date: 20190315
  Transmission Date: 20190417
  Serious: Yes (Other)
  Sender: FDA-Public Use
  Company Number: CZ-TEVA-2018-CZ-974705

PATIENT
  Age: 18 Year
  Sex: Female

DRUGS (4)
  1. COPAXONE [Suspect]
     Active Substance: GLATIRAMER ACETATE
     Indication: CLINICALLY ISOLATED SYNDROME
     Route: 058
     Dates: start: 20181004
  2. MEDROL [Concomitant]
     Active Substance: METHYLPREDNISOLONE
     Dosage: 16MG - 1/2 TABLET EVERY OTHER DAY
  3. POTASSIUM CHLORIDE. [Concomitant]
     Active Substance: POTASSIUM CHLORIDE
     Dosage: 1 DOSAGE FORMS DAILY; 1 DOSAGE FORM = 1 TABLET
  4. HELICID [Concomitant]
     Active Substance: OMEPRAZOLE
     Dosage: 1 DOSAGE FORMS DAILY; 1 DOSAGE FORM = 1 CAPSULE

REACTIONS (7)
  - Anticipatory anxiety [Recovered/Resolved]
  - Injection site swelling [Recovered/Resolved]
  - Immediate post-injection reaction [Recovered/Resolved]
  - Injection site erythema [Recovered/Resolved]
  - Chest discomfort [Recovered/Resolved]
  - Dyspnoea [Recovered/Resolved]
  - Hyperhidrosis [Recovered/Resolved]

NARRATIVE: CASE EVENT DATE: 20181022
